FAERS Safety Report 8948650 (Version 1)
Quarter: 2012Q4

REPORT INFORMATION
  Report Type: 
  Country: BR (occurrence: BR)
  Receive Date: 20121206
  Receipt Date: 20121206
  Transmission Date: 20130627
  Serious: Yes (Hospitalization, Other)
  Sender: FDA-Public Use
  Company Number: BR-JNJFOC-20121113248

PATIENT
  Sex: Female

DRUGS (10)
  1. XARELTO [Suspect]
     Indication: DEEP VEIN THROMBOSIS
     Route: 048
     Dates: start: 201208
  2. XARELTO [Suspect]
     Indication: PULMONARY EMBOLISM
     Route: 048
     Dates: start: 201208
  3. MIRENA [Suspect]
     Indication: CONTRACEPTION
     Dosage: 20 mcg
     Route: 015
     Dates: start: 2010
  4. DIENOGEST [Suspect]
     Indication: ENDOMETRIOSIS
     Route: 048
     Dates: start: 201209
  5. FLUDROCORTISONE [Concomitant]
     Indication: PRESYNCOPE
     Route: 065
  6. BUSCOPAN COMPOSTO [Concomitant]
     Indication: PAIN
     Route: 048
     Dates: start: 201208
  7. MAREVAN [Concomitant]
     Indication: ENDOMETRIOSIS ABLATION
     Route: 065
     Dates: start: 201207
  8. BI-PROFENID [Concomitant]
     Indication: PAIN
     Route: 048
     Dates: start: 2012, end: 2012
  9. PANTOPRAZOLE [Concomitant]
     Indication: PROPHYLAXIS
     Route: 048
     Dates: start: 201201
  10. DOMPERIDONE [Concomitant]
     Indication: PROPHYLAXIS
     Route: 048
     Dates: start: 201201

REACTIONS (5)
  - Pulmonary embolism [Unknown]
  - Endometriosis [Unknown]
  - Deep vein thrombosis [Unknown]
  - Nausea [Unknown]
  - Incorrect dose administered [Unknown]
